FAERS Safety Report 22288443 (Version 1)
Quarter: 2023Q2

REPORT INFORMATION
  Report Type: Spontaneous
  Country: CO (occurrence: CO)
  Receive Date: 20230505
  Receipt Date: 20230505
  Transmission Date: 20230722
  Serious: Yes (Death, Hospitalization)
  Sender: FDA-Public Use
  Company Number: CO-drreddys-LIT/COL/23/0164692

PATIENT
  Age: 66 Year
  Sex: Female

DRUGS (5)
  1. BEVACIZUMAB [Suspect]
     Active Substance: BEVACIZUMAB
     Indication: Lung adenocarcinoma stage IV
  2. PEMETREXED [Suspect]
     Active Substance: PEMETREXED
     Indication: Lung adenocarcinoma stage IV
  3. CARBOPLATIN [Suspect]
     Active Substance: CARBOPLATIN
     Indication: Lung adenocarcinoma stage IV
  4. MEROPENEM [Suspect]
     Active Substance: MEROPENEM
     Indication: Lung adenocarcinoma stage IV
  5. COTRIMOXAZOLE [Suspect]
     Active Substance: SULFAMETHOXAZOLE\TRIMETHOPRIM
     Indication: Lung adenocarcinoma stage IV

REACTIONS (4)
  - Burkholderia pseudomallei infection [Fatal]
  - Condition aggravated [Unknown]
  - Lung adenocarcinoma stage IV [Unknown]
  - Drug ineffective [Unknown]
